FAERS Safety Report 14125320 (Version 1)
Quarter: 2017Q4

REPORT INFORMATION
  Report Type: Spontaneous
  Country: FR (occurrence: FR)
  Receive Date: 20171025
  Receipt Date: 20171025
  Transmission Date: 20180321
  Serious: Yes (Life-Threatening)
  Sender: FDA-Public Use
  Company Number: FR-ASTRAZENECA-2017SF08758

PATIENT
  Age: 11763 Day
  Sex: Male

DRUGS (9)
  1. SERESTA [Suspect]
     Active Substance: OXAZEPAM
     Indication: TOXICITY TO VARIOUS AGENTS
     Dosage: 50 MG 40 DOSAGE FORMS (SINGLE DOSE)
     Route: 048
     Dates: start: 20170819, end: 20170819
  2. VENLAFAXINE [Concomitant]
     Active Substance: VENLAFAXINE HYDROCHLORIDE
  3. THERALENE [Suspect]
     Active Substance: TRIMEPRAZINE
     Indication: TOXICITY TO VARIOUS AGENTS
     Dosage: 5 MG 25 DOSAGE FORMS (SINGLE DOSE)
     Route: 048
     Dates: start: 20170819, end: 20170819
  4. TRANXENE [Suspect]
     Active Substance: CLORAZEPATE DIPOTASSIUM
     Indication: TOXICITY TO VARIOUS AGENTS
     Dosage: 10 MG 10 DOSAGE FORMS (SINGLE DOSE)
     Route: 048
     Dates: start: 20170819, end: 20170819
  5. METHADONE [Concomitant]
     Active Substance: METHADONE HYDROCHLORIDE
  6. IMOVANE [Concomitant]
     Active Substance: ZOPICLONE
  7. OLANZAPINE. [Concomitant]
     Active Substance: OLANZAPINE
  8. EUPANTOL [Concomitant]
     Active Substance: PANTOPRAZOLE SODIUM
  9. XEROQUEL SR [Suspect]
     Active Substance: QUETIAPINE FUMARATE
     Indication: TOXICITY TO VARIOUS AGENTS
     Dosage: 300 MG 30 DOSAGE FORMS (SINGLE DOSE)
     Route: 048
     Dates: start: 20170819, end: 20170819

REACTIONS (3)
  - Toxicity to various agents [Recovered/Resolved]
  - Coma [Recovered/Resolved]
  - Hypotonia [Recovered/Resolved]

NARRATIVE: CASE EVENT DATE: 20170820
